FAERS Safety Report 13446121 (Version 1)
Quarter: 2017Q2

REPORT INFORMATION
  Report Type: Spontaneous
  Country: US (occurrence: US)
  Receive Date: 20170417
  Receipt Date: 20170417
  Transmission Date: 20170830
  Serious: No
  Sender: FDA-Public Use
  Company Number: US-ACCORD-039803

PATIENT
  Age: 73 Year
  Sex: Female
  Weight: 77.11 kg

DRUGS (3)
  1. SIMVASTATIN. [Suspect]
     Active Substance: SIMVASTATIN
     Indication: BLOOD CHOLESTEROL
     Dosage: STRENGTH: 10 MG, FREQUENCY : QD?RECEIVED 10 MG FOR YEARS
     Route: 048
     Dates: end: 20160409
  2. VITAMINS NOS [Concomitant]
     Active Substance: VITAMINS
  3. LEVOTHYROXINE. [Concomitant]
     Active Substance: LEVOTHYROXINE

REACTIONS (2)
  - Pain in extremity [Unknown]
  - Myalgia [Unknown]
